FAERS Safety Report 23937157 (Version 1)
Quarter: 2024Q2

REPORT INFORMATION
  Report Type: Spontaneous
  Country: US (occurrence: None)
  Receive Date: 20240603
  Receipt Date: 20240603
  Transmission Date: 20240716
  Serious: Yes (Other)
  Sender: FDA-Public Use
  Company Number: None

PATIENT
  Age: 25 Year
  Sex: Female
  Weight: 64.8 kg

DRUGS (3)
  1. BACTRIM [Suspect]
     Active Substance: SULFAMETHOXAZOLE\TRIMETHOPRIM
     Indication: Urinary tract infection
     Dosage: FREQUENCY : TWICE A DAY;?
     Route: 048
     Dates: start: 20240529, end: 20240529
  2. CLONAZEPAM [Concomitant]
     Active Substance: CLONAZEPAM
  3. VITAMINS [Concomitant]
     Active Substance: VITAMINS

REACTIONS (18)
  - Hyperhidrosis [None]
  - Hypoaesthesia [None]
  - Hypoaesthesia [None]
  - Dizziness [None]
  - Tremor [None]
  - Panic reaction [None]
  - Flushing [None]
  - Vision blurred [None]
  - Hunger [None]
  - Throat tightness [None]
  - Erythema [None]
  - Speech disorder [None]
  - Blood pressure increased [None]
  - Palpitations [None]
  - Heart rate increased [None]
  - Hypersensitivity [None]
  - Anxiety [None]
  - Gastrooesophageal reflux disease [None]

NARRATIVE: CASE EVENT DATE: 20240529
